FAERS Safety Report 16124593 (Version 2)
Quarter: 2019Q3

REPORT INFORMATION
  Report Type: Report from Study
  Country: FR (occurrence: FR)
  Receive Date: 20190327
  Receipt Date: 20190719
  Transmission Date: 20191004
  Serious: Yes (Other)
  Sender: FDA-Public Use
  Company Number: PHHO2019FR002963

PATIENT
  Age: 61 Year
  Sex: Male
  Weight: 66 kg

DRUGS (9)
  1. DAUNORUBICINE [Suspect]
     Active Substance: DAUNORUBICIN
     Indication: PRODUCT USED FOR UNKNOWN INDICATION
     Dosage: 100 MG, QD
     Route: 042
     Dates: start: 20190125, end: 20190127
  2. LOMUSTINE. [Suspect]
     Active Substance: LOMUSTINE
     Indication: ACUTE MYELOID LEUKAEMIA
     Dosage: 360 MG, QD
     Route: 048
     Dates: start: 20190125
  3. COVERSYL [Concomitant]
     Active Substance: PERINDOPRIL
     Indication: HYPERTENSION
     Dosage: 5 MG, QD
     Route: 048
  4. CYTARABIN [Suspect]
     Active Substance: CYTARABINE
     Indication: ACUTE MYELOID LEUKAEMIA
     Dosage: 175 MG, QD
     Route: 042
     Dates: start: 20190125
  5. PRAVASTATIN. [Concomitant]
     Active Substance: PRAVASTATIN
     Indication: DYSLIPIDAEMIA
     Dosage: 40 MG, QD
     Route: 048
  6. ELTROMBOPAG [Suspect]
     Active Substance: ELTROMBOPAG
     Indication: ACUTE MYELOID LEUKAEMIA
     Dosage: UNK
     Route: 048
     Dates: start: 20190207
  7. ZADITOR [Concomitant]
     Active Substance: KETOTIFEN FUMARATE
     Indication: VIRAL INFECTION
     Dosage: 500 MG, QD
     Route: 048
     Dates: start: 20190113
  8. ACETYLSALICYLIC ACID [Concomitant]
     Active Substance: ASPIRIN
     Indication: ENDARTERECTOMY
     Dosage: 75 MG, QD
     Route: 048
  9. ZELITREX [Concomitant]
     Active Substance: VALACYCLOVIR HYDROCHLORIDE
     Indication: ANTIVIRAL PROPHYLAXIS
     Dosage: 500 MG, QD
     Route: 048
     Dates: start: 20190113

REACTIONS (1)
  - Ejection fraction decreased [Recovered/Resolved]

NARRATIVE: CASE EVENT DATE: 20190304
